FAERS Safety Report 4948569-2 (Version None)
Quarter: 2006Q1

REPORT INFORMATION
  Report Type: 
  Country: None (occurrence: None)
  Receive Date: 20060320
  Receipt Date: 20051219
  Transmission Date: 20060701
  Serious: Yes (Hospitalization)
  Sender: FDA-Public Use
  Company Number: US-MERCK-0512USA02800

PATIENT
  Age: 50 Year
  Sex: Female
  Weight: 90 kg

DRUGS (5)
  1. VIOXX [Suspect]
     Route: 048
     Dates: start: 20030501
  2. ASPIRIN [Concomitant]
     Route: 048
  3. ZOCOR [Concomitant]
     Route: 048
     Dates: start: 20030401
  4. GLUCOTROL XL [Concomitant]
     Route: 048
  5. MAXZIDE [Concomitant]
     Route: 065

REACTIONS (16)
  - ANAEMIA [None]
  - AZOTAEMIA [None]
  - CEREBRAL ARTERIOSCLEROSIS [None]
  - CEREBRAL ARTERY STENOSIS [None]
  - DEEP VEIN THROMBOSIS [None]
  - DYSARTHRIA [None]
  - HEADACHE [None]
  - HEMIPARESIS [None]
  - HYPERGLYCAEMIA [None]
  - PELVIC HAEMATOMA [None]
  - RENAL FAILURE CHRONIC [None]
  - RETINAL DETACHMENT [None]
  - RETINAL HAEMORRHAGE [None]
  - THERMAL BURN [None]
  - TRANSIENT ISCHAEMIC ATTACK [None]
  - URINARY TRACT INFECTION [None]
